FAERS Safety Report 7038345-1 (Version None)
Quarter: 2010Q4

REPORT INFORMATION
  Report Type: 
  Country: None (occurrence: None)
  Receive Date: 20101011
  Receipt Date: 20091105
  Transmission Date: 20110411
  Serious: No
  Sender: FDA-Public Use
  Company Number: US-PFIZER INC-2009294991

PATIENT
  Sex: Female
  Weight: 63.492 kg

DRUGS (5)
  1. GABAPENTIN [Suspect]
     Indication: PAIN
     Dosage: 700 MG, 1X/DAY
     Route: 048
     Dates: start: 20070101
  2. NEXIUM [Concomitant]
     Dosage: UNK
  3. SYNTHROID [Concomitant]
     Dosage: UNK
  4. DYAZIDE [Concomitant]
     Dosage: UNK
  5. PLAQUENIL [Concomitant]
     Dosage: UNK

REACTIONS (1)
  - DRUG INEFFECTIVE [None]
